FAERS Safety Report 5531201-7 (Version None)
Quarter: 2007Q4

REPORT INFORMATION
  Report Type: 
  Country: None (occurrence: None)
  Receive Date: 20071130
  Receipt Date: 20071121
  Transmission Date: 20080405
  Serious: Yes (Other)
  Sender: FDA-Public Use
  Company Number: US-ABBOTT-07P-163-0425812-00

PATIENT
  Age: 63 Year
  Sex: Male
  Weight: 109 kg

DRUGS (9)
  1. NIASPAN [Suspect]
     Indication: BLOOD CHOLESTEROL INCREASED
     Route: 048
     Dates: start: 20050101, end: 20071102
  2. NIASPAN [Suspect]
     Route: 048
     Dates: start: 20071109
  3. RAMIPRIL [Concomitant]
     Indication: DRUG USE FOR UNKNOWN INDICATION
     Route: 048
  4. INEGY [Concomitant]
     Indication: DRUG USE FOR UNKNOWN INDICATION
     Route: 048
     Dates: end: 20071102
  5. INEGY [Concomitant]
     Route: 048
     Dates: start: 20071109
  6. CLOPIDOGREL [Concomitant]
     Indication: DRUG USE FOR UNKNOWN INDICATION
     Route: 048
     Dates: end: 20071102
  7. CLOPIDOGREL [Concomitant]
     Dates: start: 20071109
  8. ACETYLSALICYLIC ACID SRT [Concomitant]
     Indication: PROPHYLAXIS
     Route: 048
     Dates: start: 20050101, end: 20071102
  9. ACETYLSALICYLIC ACID SRT [Concomitant]
     Indication: FLUSHING

REACTIONS (5)
  - FLUSHING [None]
  - HAEMOGLOBIN DECREASED [None]
  - HAEMORRHAGE [None]
  - HEART RATE INCREASED [None]
  - INSOMNIA [None]
